FAERS Safety Report 18164393 (Version 1)
Quarter: 2020Q3

REPORT INFORMATION
  Report Type: Spontaneous
  Country: IN (occurrence: IN)
  Receive Date: 20200818
  Receipt Date: 20200818
  Transmission Date: 20201103
  Serious: Yes (Other)
  Sender: FDA-Public Use
  Company Number: IN-PFIZER INC-2020315506

PATIENT
  Age: 70 Year
  Sex: Female

DRUGS (3)
  1. FULVESTRANT. [Concomitant]
     Active Substance: FULVESTRANT
     Dosage: 500 MG, CYCLIC, (D1, D15, D29) MONTHLY
  2. DENOSUMAB [Concomitant]
     Active Substance: DENOSUMAB
     Dosage: UNK (Q 28DAYS)
  3. PALBACE [Suspect]
     Active Substance: PALBOCICLIB
     Indication: BREAST CANCER METASTATIC
     Dosage: 125 MG, CYCLIC (ONCE IN A DAY, D1? D21)
     Route: 048
     Dates: start: 20200512

REACTIONS (10)
  - White blood cell count decreased [Unknown]
  - Neutrophil count decreased [Unknown]
  - Weight decreased [Unknown]
  - Red cell distribution width increased [Unknown]
  - Heart rate increased [Unknown]
  - Haemoglobin decreased [Unknown]
  - Monocyte count decreased [Unknown]
  - Body temperature decreased [Unknown]
  - Fatigue [Recovering/Resolving]
  - Pain [Unknown]

NARRATIVE: CASE EVENT DATE: 20200716
